FAERS Safety Report 18948021 (Version 6)
Quarter: 2022Q2

REPORT INFORMATION
  Report Type: Spontaneous
  Country: US (occurrence: US)
  Receive Date: 20210226
  Receipt Date: 20220519
  Transmission Date: 20220721
  Serious: Yes (Hospitalization)
  Sender: FDA-Public Use
  Company Number: US-PFIZER INC-2021182470

PATIENT
  Age: 72 Year
  Sex: Male
  Weight: 70.295 kg

DRUGS (5)
  1. GENOTROPIN [Suspect]
     Active Substance: SOMATROPIN
     Indication: Blood follicle stimulating hormone
     Dosage: 1.6 MG, DAILY (INJECTED NIGHTLY)
     Dates: end: 202010
  2. GENOTROPIN [Suspect]
     Active Substance: SOMATROPIN
     Indication: Growth hormone deficiency
     Dosage: .06 MG, 2X/DAY
     Dates: start: 2011
  3. GENOTROPIN [Suspect]
     Active Substance: SOMATROPIN
     Indication: Muscular dystrophy
     Dosage: 1.6 MG, DAILY (INJECTED NIGHTLY)
     Dates: start: 202011
  4. GENOTROPIN [Suspect]
     Active Substance: SOMATROPIN
     Indication: Hypogonadism male
     Dosage: 0.25 ML, WEEKLY (ONCE PER WEEK)
  5. ELIQUIS [Concomitant]
     Active Substance: APIXABAN
     Indication: Anticoagulant therapy
     Dosage: 5 MG, 2X/DAY

REACTIONS (6)
  - COVID-19 [Recovered/Resolved]
  - Dysphagia [Recovered/Resolved]
  - Blood glucose increased [Unknown]
  - Nasal congestion [Unknown]
  - Product prescribing error [Unknown]
  - Intentional product misuse [Unknown]

NARRATIVE: CASE EVENT DATE: 20201010
